FAERS Safety Report 24040782 (Version 3)
Quarter: 2024Q3

REPORT INFORMATION
  Report Type: Report from Study
  Country: US (occurrence: US)
  Receive Date: 20240702
  Receipt Date: 20240730
  Transmission Date: 20241016
  Serious: Yes (Other)
  Sender: TAKEDA
  Company Number: US-TAKEDA-2024TUS065874

PATIENT
  Sex: Female

DRUGS (2)
  1. FRUQUINTINIB [Suspect]
     Active Substance: FRUQUINTINIB
     Indication: Colon cancer
     Dosage: 5 MILLIGRAM
     Route: 048
     Dates: start: 20240606
  2. FRUQUINTINIB [Suspect]
     Active Substance: FRUQUINTINIB
     Dosage: 5 MILLIGRAM
     Route: 048

REACTIONS (7)
  - Neuropathy peripheral [Unknown]
  - Myalgia [Unknown]
  - Dysphagia [Unknown]
  - Hand-foot-and-mouth disease [Unknown]
  - Gingival pain [Unknown]
  - Mucosal inflammation [Unknown]
  - Stomatitis [Recovering/Resolving]
